FAERS Safety Report 4581806-5 (Version None)
Quarter: 2005Q1

REPORT INFORMATION
  Report Type: 
  Country: None (occurrence: None)
  Receive Date: 20050214
  Receipt Date: 20040308
  Transmission Date: 20050727
  Serious: No
  Sender: FDA-Public Use
  Company Number: US-GLAXOSMITHKLINE-A0501591A

PATIENT
  Age: 39 Year
  Sex: Male

DRUGS (4)
  1. LAMICTAL [Suspect]
     Indication: BIPOLAR DISORDER
     Route: 048
     Dates: start: 20040224, end: 20040227
  2. ESKALITH CR [Concomitant]
  3. EFFEXOR XR [Concomitant]
  4. WELLBUTRIN XL [Concomitant]

REACTIONS (2)
  - MOUTH ULCERATION [None]
  - RASH [None]
